FAERS Safety Report 8096875-8 (Version None)
Quarter: 2012Q1

REPORT INFORMATION
  Report Type: 
  Country: None (occurrence: None)
  Receive Date: 20120129
  Receipt Date: 20111205
  Transmission Date: 20120608
  Serious: No
  Sender: FDA-Public Use
  Company Number: US-ABBOTT-11P-163-0880721-00

PATIENT
  Age: 48 Year
  Sex: Female

DRUGS (13)
  1. TEMAZEPAM [Concomitant]
     Indication: INSOMNIA
  2. LOVASTATIN [Concomitant]
     Indication: BLOOD CHOLESTEROL
  3. LISINOPRIL [Concomitant]
     Indication: BLOOD PRESSURE
  4. SUMATRIPTAN SUCCINATE [Concomitant]
     Indication: MIGRAINE
     Route: 050
  5. METHOTREXATE [Concomitant]
     Indication: RHEUMATOID ARTHRITIS
  6. LORATADINE [Concomitant]
     Indication: HYPERSENSITIVITY
  7. ALBUTEROL [Concomitant]
     Indication: ASTHMA
  8. LEXAPRO [Concomitant]
     Indication: DEPRESSION
  9. ASPIRIN [Concomitant]
     Indication: PRODUCT USED FOR UNKNOWN INDICATION
  10. MOTRIN [Concomitant]
     Indication: PAIN
  11. FOLIC ACID [Concomitant]
     Indication: VITAMIN SUPPLEMENTATION
  12. TYLENOL W/ CODEINE NO. 3 [Concomitant]
     Indication: PAIN
  13. HUMIRA [Suspect]
     Indication: RHEUMATOID ARTHRITIS
     Dates: start: 20111026

REACTIONS (7)
  - PAIN [None]
  - FATIGUE [None]
  - COUGH [None]
  - INCREASED UPPER AIRWAY SECRETION [None]
  - HEADACHE [None]
  - OROPHARYNGEAL PAIN [None]
  - THROAT IRRITATION [None]
